FAERS Safety Report 15644329 (Version 5)
Quarter: 2020Q4

REPORT INFORMATION
  Report Type: Report from Study
  Country: US (occurrence: US)
  Receive Date: 20181121
  Receipt Date: 20201008
  Transmission Date: 20210113
  Serious: Yes (Hospitalization, Other)
  Sender: FDA-Public Use
  Company Number: US-SA-2016SA176343

PATIENT

DRUGS (4)
  1. LARONIDASE [Suspect]
     Active Substance: LARONIDASE
     Dosage: 49.3 MG, QW
     Route: 042
     Dates: start: 20160210
  2. LARONIDASE [Suspect]
     Active Substance: LARONIDASE
     Indication: MUCOPOLYSACCHARIDOSIS I
     Dosage: 49.3 MG, QW
     Route: 041
     Dates: start: 2002
  3. LARONIDASE [Suspect]
     Active Substance: LARONIDASE
     Dosage: 49.3 MG, QW
     Route: 041
     Dates: start: 201510
  4. LARONIDASE [Suspect]
     Active Substance: LARONIDASE
     Dosage: 49.30 MG, QW
     Route: 041
     Dates: start: 20050214

REACTIONS (9)
  - Cerebrovascular accident [Unknown]
  - Urinary incontinence [Unknown]
  - Nasal congestion [Unknown]
  - Kidney infection [Unknown]
  - Sinusitis [Unknown]
  - Corneal disorder [Recovered/Resolved]
  - Fibromyalgia [Unknown]
  - Malaise [Unknown]
  - Neuralgia [Unknown]

NARRATIVE: CASE EVENT DATE: 20160908
